FAERS Safety Report 6699242-4 (Version None)
Quarter: 2010Q2

REPORT INFORMATION
  Report Type: 
  Country: None (occurrence: None)
  Receive Date: 20100427
  Receipt Date: 20100413
  Transmission Date: 20101027
  Serious: Yes (Hospitalization, Other)
  Sender: FDA-Public Use
  Company Number: US-ELI_LILLY_AND_COMPANY-US201002003517

PATIENT
  Sex: Female

DRUGS (3)
  1. FORTEO [Suspect]
     Indication: OSTEOPENIA
     Dosage: 20 UG, DAILY (1/D)
     Route: 065
     Dates: start: 20090601
  2. DILAUDID [Concomitant]
     Dosage: 2 MG, AS NEEDED
     Route: 065
  3. PAXIL [Concomitant]
     Dosage: 40 MG, DAILY (1/D)
     Route: 065

REACTIONS (6)
  - ARTHRALGIA [None]
  - INFECTION [None]
  - MUSCULOSKELETAL DISCOMFORT [None]
  - OSTEOMYELITIS [None]
  - PAIN [None]
  - PAIN IN EXTREMITY [None]
